FAERS Safety Report 9791079 (Version 3)
Quarter: 2014Q1

REPORT INFORMATION
  Report Type: Spontaneous
  Country: US (occurrence: US)
  Receive Date: 20131231
  Receipt Date: 20140217
  Transmission Date: 20141002
  Serious: Yes (Other)
  Sender: FDA-Public Use
  Company Number: US-BIOGENIDEC-2013BI123121

PATIENT
  Age: 23 Year
  Sex: Male

DRUGS (3)
  1. TECFIDERA [Suspect]
     Indication: MULTIPLE SCLEROSIS
     Route: 048
     Dates: start: 201309
  2. TECFIDERA [Suspect]
     Indication: MULTIPLE SCLEROSIS
     Route: 048
     Dates: end: 201401
  3. HYDROCODONE [Concomitant]
     Indication: PAIN

REACTIONS (9)
  - Cardiac arrest [Recovered/Resolved]
  - Heart rate irregular [Recovered/Resolved]
  - Dizziness [Not Recovered/Not Resolved]
  - Paraesthesia [Unknown]
  - Flushing [Not Recovered/Not Resolved]
  - Pruritus [Unknown]
  - Ventricular extrasystoles [Recovered/Resolved]
  - Syncope [Recovered/Resolved]
  - Palpitations [Recovered/Resolved]
